FAERS Safety Report 7985847-7 (Version None)
Quarter: 2011Q4

REPORT INFORMATION
  Report Type: 
  Country: None (occurrence: None)
  Receive Date: 20111216
  Receipt Date: 20111212
  Transmission Date: 20120403
  Serious: Yes (Hospitalization)
  Sender: FDA-Public Use
  Company Number: US-PFIZER INC-2011273572

PATIENT
  Sex: Male
  Weight: 81.633 kg

DRUGS (2)
  1. VIAGRA [Suspect]
     Dosage: UNK, AS NEEDED
  2. VIAGRA [Suspect]
     Dosage: 50 MG, AS NEEDED
     Route: 048
     Dates: start: 20111001

REACTIONS (2)
  - MUSCLE SPASMS [None]
  - PAIN IN EXTREMITY [None]
